FAERS Safety Report 7262163-2 (Version None)
Quarter: 2011Q1

REPORT INFORMATION
  Report Type: 
  Country: None (occurrence: None)
  Receive Date: 20110130
  Receipt Date: 20101214
  Transmission Date: 20110831
  Serious: No
  Sender: FDA-Public Use
  Company Number: US-ABBOTT-10P-163-0691610-00

PATIENT
  Age: 24 Year
  Sex: Female

DRUGS (13)
  1. HUMIRA [Suspect]
     Dates: start: 20101201
  2. PREDNISONE [Concomitant]
     Indication: CROHN'S DISEASE
  3. HUMIRA [Suspect]
     Indication: CROHN'S DISEASE
     Dates: start: 20100901, end: 20101101
  4. ALBUTEROL [Concomitant]
     Indication: ASTHMA
     Dosage: PRN
  5. METHOTREXATE [Concomitant]
     Indication: CROHN'S DISEASE
  6. PLAQUENIL [Concomitant]
     Indication: ARTHRITIS ENTEROPATHIC
  7. IMITREX [Concomitant]
     Indication: MIGRAINE
     Dosage: PRN
  8. PREDNISONE [Concomitant]
     Dosage: 20MG DAILY PRIOR TO INJECTION OF HUMIRA
  9. HUMIRA [Suspect]
     Indication: CROHN'S DISEASE
  10. YASMIN [Concomitant]
     Indication: CONTRACEPTION
  11. PREDNISONE [Concomitant]
     Dosage: THE DAY FOLLOWING INJECTION
  12. PREDNISONE [Concomitant]
     Dosage: THE DAY OF INJECTION
  13. TOPAMAX [Concomitant]
     Indication: MIGRAINE

REACTIONS (5)
  - INJECTION SITE REACTION [None]
  - DRUG INEFFECTIVE [None]
  - INJECTION SITE ERYTHEMA [None]
  - INJECTION SITE WARMTH [None]
  - URTICARIA [None]
